FAERS Safety Report 13741325 (Version 1)
Quarter: 2017Q3

REPORT INFORMATION
  Report Type: Spontaneous
  Country: JP (occurrence: JP)
  Receive Date: 20170711
  Receipt Date: 20170711
  Transmission Date: 20171127
  Serious: Yes (Other)
  Sender: FDA-Public Use
  Company Number: JP-PFIZER INC-2017294157

PATIENT

DRUGS (4)
  1. ASPARA K [Concomitant]
     Active Substance: POTASSIUM ASPARTATE
     Dosage: UNK
  2. HALFDIGOXIN [Concomitant]
     Active Substance: DIGOXIN
     Dosage: UNK
  3. SELARA [Suspect]
     Active Substance: EPLERENONE
     Dosage: UNK
  4. LASIX [Concomitant]
     Active Substance: FUROSEMIDE
     Dosage: UNK

REACTIONS (1)
  - Blood potassium decreased [Unknown]
